FAERS Safety Report 8031251-5 (Version None)
Quarter: 2012Q1

REPORT INFORMATION
  Report Type: 
  Country: None (occurrence: None)
  Receive Date: 20120109
  Receipt Date: 20120105
  Transmission Date: 20120608
  Serious: Yes (Hospitalization, Disabling)
  Sender: FDA-Public Use
  Company Number: US-MERCK-1007USA02359

PATIENT
  Age: 60 Year
  Sex: Female

DRUGS (4)
  1. FOSAMAX [Suspect]
     Indication: OSTEOPENIA
     Route: 048
     Dates: start: 20011001, end: 20071001
  2. FOSAMAX [Suspect]
     Route: 048
     Dates: end: 20080408
  3. FOSAMAX [Suspect]
     Indication: OSTEOPOROSIS
     Route: 048
     Dates: start: 20011001, end: 20071001
  4. FOSAMAX [Suspect]
     Route: 048
     Dates: end: 20080408

REACTIONS (52)
  - SINUSITIS [None]
  - SCOLIOSIS [None]
  - TOOTH INFECTION [None]
  - THROMBOSIS [None]
  - TACHYCARDIA [None]
  - CEREBRAL ISCHAEMIA [None]
  - DENTAL CARIES [None]
  - TONGUE ULCERATION [None]
  - LACTOSE INTOLERANCE [None]
  - IMPAIRED HEALING [None]
  - NEURODEGENERATIVE DISORDER [None]
  - DECREASED APPETITE [None]
  - BACTERIAL INFECTION [None]
  - INSOMNIA [None]
  - URINARY TRACT INFECTION [None]
  - ARTERIOSCLEROSIS [None]
  - DERMATITIS ALLERGIC [None]
  - ABSCESS [None]
  - ROAD TRAFFIC ACCIDENT [None]
  - HYPOAESTHESIA ORAL [None]
  - HYPERSENSITIVITY [None]
  - DIVERTICULUM [None]
  - LUNG NEOPLASM [None]
  - HYPERLIPIDAEMIA [None]
  - HEADACHE [None]
  - GINGIVAL DISORDER [None]
  - INTERVERTEBRAL DISC DEGENERATION [None]
  - POLYP [None]
  - WEIGHT DECREASED [None]
  - TOOTH DISORDER [None]
  - NECK PAIN [None]
  - OSTEONECROSIS OF JAW [None]
  - DYSPLASIA [None]
  - DRUG RESISTANCE [None]
  - EMPHYSEMA [None]
  - ACROCHORDON [None]
  - SIALOADENITIS [None]
  - DRUG HYPERSENSITIVITY [None]
  - COUGH [None]
  - POST-TRAUMATIC NECK SYNDROME [None]
  - TOOTHACHE [None]
  - COLONIC POLYP [None]
  - NIGHT SWEATS [None]
  - TRIGEMINAL NEURALGIA [None]
  - LYMPHADENOPATHY [None]
  - LEUKOPLAKIA [None]
  - HAEMORRHOIDS [None]
  - DYSPNOEA [None]
  - ADVERSE DRUG REACTION [None]
  - OSTEOMYELITIS [None]
  - CEREBRAL ATROPHY [None]
  - ATELECTASIS [None]
